FAERS Safety Report 6582947-3 (Version None)
Quarter: 2010Q1

REPORT INFORMATION
  Report Type: 
  Country: None (occurrence: None)
  Receive Date: 20100216
  Receipt Date: 20100211
  Transmission Date: 20100710
  Serious: Yes (Hospitalization)
  Sender: FDA-Public Use
  Company Number: FR-BRISTOL-MYERS SQUIBB COMPANY-14974299

PATIENT
  Age: 63 Year
  Sex: Male
  Weight: 78 kg

DRUGS (12)
  1. CISPLATIN [Suspect]
     Indication: NON-SMALL CELL LUNG CANCER
     Dosage: REC INF: 27JAN2010
     Route: 042
     Dates: start: 20091125
  2. ALIMTA [Suspect]
     Indication: NON-SMALL CELL LUNG CANCER
     Dosage: REC INF: 27JAN2010
     Route: 042
     Dates: start: 20091125
  3. FOLIC ACID [Concomitant]
     Dates: start: 20091116
  4. VITAMIN B-12 [Concomitant]
     Dates: start: 20091116
  5. DEXAMETHASONE [Concomitant]
     Dates: start: 20091116
  6. TAHOR [Concomitant]
     Dates: start: 20100126
  7. NEXIUM [Concomitant]
     Dates: start: 20100126
  8. AMAREL [Concomitant]
     Dates: start: 20100126
  9. OXYCONTIN [Concomitant]
     Dates: start: 20100126, end: 20100201
  10. MYOLASTAN [Concomitant]
     Dates: start: 20100126
  11. TOBRAMYCIN [Concomitant]
  12. OXYNORM [Concomitant]
     Dates: start: 20100126, end: 20100201

REACTIONS (1)
  - DIABETES MELLITUS INADEQUATE CONTROL [None]
